FAERS Safety Report 25146532 (Version 1)
Quarter: 2025Q2

REPORT INFORMATION
  Report Type: Spontaneous
  Country: US (occurrence: None)
  Receive Date: 20250401
  Receipt Date: 20250401
  Transmission Date: 20250717
  Serious: Yes (Other)
  Sender: FDA-CTU
  Company Number: None

PATIENT
  Sex: Female

DRUGS (8)
  1. HUMIRA [Suspect]
     Active Substance: ADALIMUMAB
     Indication: Rheumatoid arthritis
     Route: 058
     Dates: start: 20190423
  2. ALBUTEROL AER HFA [Concomitant]
  3. CARBOPLATIN [Concomitant]
     Active Substance: CARBOPLATIN
  4. CINVANTI [Concomitant]
     Active Substance: APREPITANT
  5. DEXAMETH PHO [Concomitant]
  6. DICLOFENAC [Concomitant]
     Active Substance: DICLOFENAC
  7. DIPHENHYDRAM [Concomitant]
  8. FLONASE ALGY SPR [Concomitant]

REACTIONS (1)
  - Neoplasm malignant [None]
